FAERS Safety Report 11240021 (Version 2)
Quarter: 2015Q4

REPORT INFORMATION
  Report Type: Spontaneous
  Country: CZ (occurrence: CZ)
  Receive Date: 20150706
  Receipt Date: 20151106
  Transmission Date: 20160304
  Serious: Yes (Death, Hospitalization)
  Sender: FDA-Public Use
  Company Number: CZ-ACTELION-A-CH2015-119932

PATIENT
  Age: 47 Year
  Sex: Female
  Weight: 60 kg

DRUGS (8)
  1. METYLPREDNISOLON SOLUBILE [Suspect]
     Active Substance: METHYLPREDNISOLONE
     Indication: SCLERODERMA
     Dosage: 16 MG, QD
     Route: 048
     Dates: start: 2009, end: 20150702
  2. STAYVEER [Suspect]
     Active Substance: BOSENTAN
     Indication: SCLERODERMA ASSOCIATED DIGITAL ULCER
     Dosage: 125 MG, BID
     Route: 048
  3. RAMIPRIL. [Concomitant]
     Active Substance: RAMIPRIL
     Indication: HYPERTENSION
     Dosage: 5 MG, QD
     Route: 048
     Dates: start: 2009, end: 20150530
  4. AMLODIPIN [Concomitant]
     Active Substance: AMLODIPINE BESYLATE
     Indication: HYPERTENSION
     Dosage: 5 MG, QD
     Route: 048
     Dates: start: 2009, end: 20150530
  5. CARVEDILOL. [Concomitant]
     Active Substance: CARVEDILOL
     Indication: HYPERTENSION
     Dosage: 12.5 MG, QD
     Route: 048
     Dates: start: 2014, end: 20150530
  6. FUROSEMID [Suspect]
     Active Substance: FUROSEMIDE
     Indication: RENAL FAILURE
     Dosage: 20 MG, QD
     Route: 048
     Dates: start: 2014, end: 20150702
  7. FENTANYL. [Concomitant]
     Active Substance: FENTANYL
     Indication: SPINAL FRACTURE
     Dosage: UNK
     Dates: start: 2014, end: 20150530
  8. STAYVEER [Suspect]
     Active Substance: BOSENTAN
     Dosage: 62.5 MG, BID
     Route: 048
     Dates: start: 20140708

REACTIONS (5)
  - Cytomegalovirus infection [Fatal]
  - Pyrexia [Fatal]
  - Viral sepsis [Fatal]
  - Septic shock [Fatal]
  - Hypotension [Fatal]

NARRATIVE: CASE EVENT DATE: 20150530
